FAERS Safety Report 12562452 (Version 3)
Quarter: 2016Q3

REPORT INFORMATION
  Report Type: Spontaneous
  Country: CH (occurrence: CH)
  Receive Date: 20160715
  Receipt Date: 20160720
  Transmission Date: 20161109
  Serious: Yes (Other)
  Sender: FDA-Public Use
  Company Number: PHHY2016CH096912

PATIENT
  Sex: Female

DRUGS (4)
  1. VOTUBIA [Suspect]
     Active Substance: EVEROLIMUS
     Indication: KIDNEY ANGIOMYOLIPOMA
     Dosage: 10 MG, UNK
     Route: 048
     Dates: start: 201209
  2. TOPIRAMATE. [Concomitant]
     Active Substance: TOPIRAMATE
     Indication: EPILEPSY
     Dosage: 400 MG, UNK
     Route: 048
     Dates: start: 2005
  3. ROVASTIN [Concomitant]
     Indication: HYPERLIPIDAEMIA
     Dosage: 20 OT, UNK
     Route: 048
     Dates: start: 2012
  4. LAMOTRIGINE. [Concomitant]
     Active Substance: LAMOTRIGINE
     Indication: EPILEPSY
     Dosage: 400 MG, UNK
     Route: 048
     Dates: start: 2001

REACTIONS (4)
  - Hemiparesis [Unknown]
  - Embolic stroke [Recovered/Resolved]
  - Sensory loss [Unknown]
  - Dizziness [Unknown]

NARRATIVE: CASE EVENT DATE: 20141123
